FAERS Safety Report 4396455-1 (Version None)
Quarter: 2004Q3

REPORT INFORMATION
  Report Type: 
  Country: None (occurrence: None)
  Receive Date: 20040709
  Receipt Date: 20040621
  Transmission Date: 20050211
  Serious: Yes (Other)
  Sender: FDA-Public Use
  Company Number: 8323

PATIENT
  Age: 42 Year
  Sex: Female
  Weight: 37 kg

DRUGS (16)
  1. FLUOROURACIL [Suspect]
     Indication: COLON CANCER
     Dosage: 750 MG FORTNIGHTLY IA
     Route: 014
  2. FLUOROURACIL [Suspect]
     Indication: COLON CANCER
     Dosage: 1000 MG WEEKLY IA
     Route: 014
     Dates: start: 20011126, end: 20020403
  3. FLUOROURACIL [Suspect]
     Indication: COLON CANCER
     Dosage: 1000 MG WEEKLY IA
     Route: 014
     Dates: start: 20020415
  4. FLUOROURACIL [Suspect]
     Indication: COLON CANCER
     Dosage: 400 MG PER CYCLE IV
     Route: 042
  5. FLUOROURACIL [Suspect]
     Indication: COLON CANCER
     Dosage: 750 MG WEEKLY IA
     Route: 014
  6. FLUOROURACIL [Suspect]
     Indication: COLON CANCER
     Dosage: 1000 MG PERCYCLE IA
     Route: 014
  7. IRINOTECAN [Suspect]
     Indication: COLON CANCER
     Dosage: 80 MG FORTINGHTLY IV
     Route: 042
  8. IRINOTECAN [Suspect]
     Indication: COLON CANCER
     Dosage: 60 MG PER CYCLE IV
     Route: 042
     Dates: end: 20030801
  9. LEUCOVORIN CALCIUM [Suspect]
     Indication: COLON CANCER
     Dosage: 21 MG WEEKLY IA
     Route: 014
     Dates: start: 20020415
  10. LEUCOVORIN CALCIUM [Suspect]
     Indication: COLON CANCER
     Dosage: 30 MG PER CYCLE IV
     Route: 042
  11. CISPLATIN [Suspect]
     Indication: COLON CANCER
     Dosage: 7.5 MG WEEKLY IA
     Route: 014
     Dates: start: 20020415
  12. CISPLATIN [Suspect]
     Indication: COLON CANCER
     Dosage: 5 MG PER CYCLE IV
     Route: 042
  13. CISPLATIN [Suspect]
     Indication: COLON CANCER
     Dosage: 5 MG WEEKLY IA
     Route: 014
  14. CISPLATIN [Suspect]
     Indication: COLON CANCER
     Dosage: 5 MG PER CYCLE IV
     Route: 042
     Dates: end: 20030801
  15. UFT [Suspect]
     Dosage: 400 MG DAILY
     Dates: start: 20011126, end: 20020403
  16. LEVOFOLINATE [Concomitant]

REACTIONS (6)
  - DIARRHOEA [None]
  - HEPATIC ARTERY OCCLUSION [None]
  - ILEUS [None]
  - METASTASES TO LUNG [None]
  - NAUSEA [None]
  - VOMITING [None]
